FAERS Safety Report 8297314-4 (Version None)
Quarter: 2012Q2

REPORT INFORMATION
  Report Type: 
  Country: None (occurrence: None)
  Receive Date: 20120417
  Receipt Date: 20120413
  Transmission Date: 20120825
  Serious: Yes (Other)
  Sender: FDA-Public Use
  Company Number: ADR-2011-10854

PATIENT
  Age: 44 Year
  Sex: Male

DRUGS (1)
  1. LIORESAL [Suspect]
     Indication: MUSCLE SPASTICITY
     Dosage: 12.3 MCG, DAILY, INTRAT
     Route: 037

REACTIONS (8)
  - DEVICE POWER SOURCE ISSUE [None]
  - MALAISE [None]
  - DRUG WITHDRAWAL SYNDROME [None]
  - POST PROCEDURAL INFECTION [None]
  - DEVICE BATTERY ISSUE [None]
  - MUSCLE SPASTICITY [None]
  - DYSKINESIA [None]
  - INJURY [None]
